FAERS Safety Report 14953729 (Version 3)
Quarter: 2018Q3

REPORT INFORMATION
  Report Type: Spontaneous
  Country: US (occurrence: US)
  Receive Date: 20180530
  Receipt Date: 20180802
  Transmission Date: 20181010
  Serious: No
  Sender: FDA-Public Use
  Company Number: US-ACTELION-A-NJ2018-171984

PATIENT
  Age: 52 Year
  Sex: Female

DRUGS (3)
  1. OPSUMIT [Suspect]
     Active Substance: MACITENTAN
     Indication: PULMONARY ARTERIAL HYPERTENSION
     Dosage: 10 MG, QD
     Route: 048
     Dates: start: 20180502
  2. REMODULIN [Concomitant]
     Active Substance: TREPROSTINIL
     Dosage: UNK
     Route: 042
  3. REMODULIN [Concomitant]
     Active Substance: TREPROSTINIL
     Dosage: 16 NG/KG, PER MIN
     Route: 042

REACTIONS (3)
  - Pain in extremity [Recovered/Resolved]
  - Diarrhoea [Unknown]
  - Skin infection [Unknown]

NARRATIVE: CASE EVENT DATE: 20180502
